FAERS Safety Report 17171276 (Version 1)
Quarter: 2019Q4

REPORT INFORMATION
  Report Type: Spontaneous
  Country: US (occurrence: US)
  Receive Date: 20191218
  Receipt Date: 20191218
  Transmission Date: 20200122
  Serious: No
  Sender: FDA-Public Use
  Company Number: US-SUPERNUS PHARMACEUTICALS, INC.-2018SUP00332

PATIENT
  Sex: Female

DRUGS (4)
  1. TROKENDI XR [Suspect]
     Active Substance: TOPIRAMATE
     Dosage: 75 MG, 1X/DAY
     Route: 048
     Dates: start: 20181024, end: 20181028
  2. TROKENDI XR [Suspect]
     Active Substance: TOPIRAMATE
     Indication: MIGRAINE
     Dosage: 100 MG, 1X/DAY
     Route: 048
     Dates: start: 20181029
  3. TROKENDI XR [Suspect]
     Active Substance: TOPIRAMATE
     Indication: MIGRAINE
     Dosage: 25 MG, 1X/DAY
     Route: 048
     Dates: start: 20181013, end: 20181018
  4. TROKENDI XR [Suspect]
     Active Substance: TOPIRAMATE
     Dosage: 50 MG, 1X/DAY
     Route: 048
     Dates: start: 20181019, end: 20181023

REACTIONS (11)
  - Thinking abnormal [Not Recovered/Not Resolved]
  - Feeling abnormal [Not Recovered/Not Resolved]
  - Ageusia [Not Recovered/Not Resolved]
  - Disturbance in attention [Not Recovered/Not Resolved]
  - Headache [Not Recovered/Not Resolved]
  - Depression [Not Recovered/Not Resolved]
  - Drug ineffective [Not Recovered/Not Resolved]
  - Insomnia [Not Recovered/Not Resolved]
  - Weight decreased [Not Recovered/Not Resolved]
  - Asthenia [Not Recovered/Not Resolved]
  - Feeding disorder [Not Recovered/Not Resolved]

NARRATIVE: CASE EVENT DATE: 201810
